FAERS Safety Report 5247317-9 (Version None)
Quarter: 2007Q1

REPORT INFORMATION
  Report Type: 
  Country: None (occurrence: None)
  Receive Date: 20070223
  Receipt Date: 20070223
  Transmission Date: 20070707
  Serious: Yes (Hospitalization, Other)
  Sender: FDA-Public Use
  Company Number: None

PATIENT
  Age: 60 Year
  Sex: Female
  Weight: 66.2 kg

DRUGS (12)
  1. IODIXANOL    320MGI/ML     AMERSHAM HEALTH [Suspect]
     Indication: SCAN WITH CONTRAST
     Dosage: 150ML  ONCE  IV
     Route: 042
     Dates: start: 20061113, end: 20061113
  2. IBUPROFEN [Suspect]
     Indication: PAIN
     Dosage: 800MG  THREE TIMES DAILY  PO
     Route: 048
  3. LANSOPRAZOLE [Concomitant]
  4. MEGESTEROL [Concomitant]
  5. MORPHINE CONCENTRATE [Concomitant]
  6. FLUCONAZOLE [Concomitant]
  7. ATORVASTATIN [Concomitant]
  8. FERROUS SULFATE [Concomitant]
  9. TRAZODONE HCL [Concomitant]
  10. MORPHINE [Concomitant]
  11. DOCUSATE SODIUM [Concomitant]
  12. SENNA [Concomitant]

REACTIONS (10)
  - CONSTIPATION [None]
  - DIARRHOEA [None]
  - DISEASE PROGRESSION [None]
  - GASTROINTESTINAL HAEMORRHAGE [None]
  - HAEMATOCHEZIA [None]
  - HYPOXIA [None]
  - NEPHROPATHY [None]
  - PAIN [None]
  - RECTAL HAEMORRHAGE [None]
  - RENAL FAILURE ACUTE [None]
